FAERS Safety Report 8143636-7 (Version None)
Quarter: 2012Q1

REPORT INFORMATION
  Report Type: 
  Country: None (occurrence: None)
  Receive Date: 20120217
  Receipt Date: 20120116
  Transmission Date: 20120608
  Serious: Yes (Disabling)
  Sender: FDA-Public Use
  Company Number: CA-ELI_LILLY_AND_COMPANY-CA201201003408

PATIENT
  Age: 70 Year
  Sex: Female

DRUGS (2)
  1. ADCIRCA [Suspect]
     Dosage: 40 MG, QD
     Dates: start: 20110101
  2. FORTEO [Suspect]
     Dosage: UNK
     Dates: start: 20111201

REACTIONS (1)
  - DEAFNESS [None]
